FAERS Safety Report 4354101-7 (Version None)
Quarter: 2004Q2

REPORT INFORMATION
  Report Type: 
  Country: None (occurrence: None)
  Receive Date: 20040505
  Receipt Date: 20040505
  Transmission Date: 20050107
  Serious: Yes (Death)
  Sender: FDA-Public Use
  Company Number: None

PATIENT
  Age: 70 Year
  Sex: Female
  Weight: 77.1115 kg

DRUGS (3)
  1. TAXOL [Suspect]
     Indication: OVARIAN CANCER
     Dosage: 375 MG
     Dates: start: 20040419
  2. CARBOPLATIN [Suspect]
     Dosage: 498 MG
     Dates: start: 20040419
  3. DOXIL [Suspect]
     Dosage: 56 MG
     Dates: start: 20040419

REACTIONS (1)
  - DEATH [None]
